FAERS Safety Report 5618700-4 (Version None)
Quarter: 2008Q1

REPORT INFORMATION
  Report Type: 
  Country: None (occurrence: None)
  Receive Date: 20080207
  Receipt Date: 20080204
  Transmission Date: 20080703
  Serious: Yes (Other)
  Sender: FDA-Public Use
  Company Number: CN-ASTRAZENECA-2008AP00762

PATIENT
  Age: 20 Year
  Sex: Female

DRUGS (3)
  1. SEROQUEL [Suspect]
     Indication: MANIA
     Dosage: 600-700 MG
     Route: 048
     Dates: start: 20080123, end: 20080203
  2. MAGNESIUM VALPROATE [Suspect]
     Indication: MANIA
     Route: 048
     Dates: start: 20080123
  3. ALPRAZOLAM [Suspect]
     Indication: MANIA
     Route: 048
     Dates: start: 20080123, end: 20080131

REACTIONS (1)
  - ERYTHEMA MULTIFORME [None]
